FAERS Safety Report 23874745 (Version 1)
Quarter: 2024Q2

REPORT INFORMATION
  Report Type: Spontaneous
  Country: US (occurrence: US)
  Receive Date: 20240520
  Receipt Date: 20240520
  Transmission Date: 20240716
  Serious: No
  Sender: FDA-Public Use
  Company Number: US-ABBVIE-5760897

PATIENT
  Age: 9 Year
  Sex: Female
  Weight: 25 kg

DRUGS (3)
  1. LUPRON DEPOT-PED [Suspect]
     Active Substance: LEUPROLIDE ACETATE
     Indication: Precocious puberty
     Dosage: FORM STRENGTH: 15 MILLIGRAM
     Route: 030
     Dates: start: 20230627, end: 20231228
  2. JORNAY PM EXTENDED-RELEASE [Concomitant]
     Active Substance: METHYLPHENIDATE HYDROCHLORIDE
     Indication: Attention deficit hyperactivity disorder
  3. ZONISAMIDE [Concomitant]
     Active Substance: ZONISAMIDE
     Indication: Seizure

REACTIONS (3)
  - Enuresis [Recovered/Resolved]
  - Aggression [Recovered/Resolved]
  - Hallucination, visual [Recovered/Resolved]

NARRATIVE: CASE EVENT DATE: 20231121
